FAERS Safety Report 4316009-2 (Version None)
Quarter: 2004Q1

REPORT INFORMATION
  Report Type: 
  Country: None (occurrence: None)
  Receive Date: 20040311
  Receipt Date: 20040226
  Transmission Date: 20041129
  Serious: Yes (Other)
  Sender: FDA-Public Use
  Company Number: 2004201131ES

PATIENT
  Age: 14 Year
  Sex: Male
  Weight: 28 kg

DRUGS (2)
  1. GENOTROPIN [Suspect]
     Indication: RENAL FAILURE CHRONIC
     Dosage: 1.2 MG, QD
     Dates: start: 20010824, end: 20030501
  2. PROGRAF [Suspect]
     Dosage: 2 MG/12 HOURS, ORAL
     Route: 048
     Dates: start: 20000216, end: 20030501

REACTIONS (3)
  - DIALYSIS [None]
  - LYMPHOMA [None]
  - RENAL DISORDER [None]
